FAERS Safety Report 12513151 (Version 3)
Quarter: 2020Q1

REPORT INFORMATION
  Report Type: Spontaneous
  Country: US (occurrence: US)
  Receive Date: 20160630
  Receipt Date: 20200206
  Transmission Date: 20200409
  Serious: Yes (Death, Hospitalization)
  Sender: FDA-Public Use
  Company Number: US-JNJFOC-20160525334

PATIENT
  Age: 51 Year
  Sex: Female
  Weight: 104.3 kg

DRUGS (5)
  1. XARELTO [Suspect]
     Active Substance: RIVAROXABAN
     Indication: ATRIAL FIBRILLATION
     Route: 048
     Dates: start: 20141017, end: 20150415
  2. XARELTO [Suspect]
     Active Substance: RIVAROXABAN
     Indication: CEREBROVASCULAR ACCIDENT PROPHYLAXIS
  3. XARELTO [Suspect]
     Active Substance: RIVAROXABAN
     Indication: RENAL VEIN THROMBOSIS
  4. XARELTO [Suspect]
     Active Substance: RIVAROXABAN
     Indication: VENA CAVA THROMBOSIS
  5. XARELTO [Suspect]
     Active Substance: RIVAROXABAN
     Indication: THROMBOSIS PROPHYLAXIS

REACTIONS (1)
  - Internal haemorrhage [Unknown]

NARRATIVE: CASE EVENT DATE: 20150415
